FAERS Safety Report 15200151 (Version 27)
Quarter: 2021Q1

REPORT INFORMATION
  Report Type: Report from Study
  Country: None (occurrence: NL)
  Receive Date: 20180726
  Receipt Date: 20210315
  Transmission Date: 20210419
  Serious: Yes (Hospitalization)
  Sender: FDA-Public Use
  Company Number: NL-ABBVIE-18S-114-2426246-00

PATIENT
  Age: 78 Year
  Sex: Male

DRUGS (21)
  1. DUODOPA [Suspect]
     Active Substance: CARBIDOPA\LEVODOPA
     Dosage: MD13.0, CD 3.6, ED 3.0
     Route: 050
     Dates: start: 20180709
  2. DUODOPA [Suspect]
     Active Substance: CARBIDOPA\LEVODOPA
     Dosage: CD: 3.8 ML
     Route: 050
     Dates: start: 2018, end: 2018
  3. DUODOPA [Suspect]
     Active Substance: CARBIDOPA\LEVODOPA
     Dosage: CD 3.4, ED 2.0
     Route: 050
  4. DUODOPA [Suspect]
     Active Substance: CARBIDOPA\LEVODOPA
     Dosage: MD: 14 ML, CD: 3.9 ML/H, ED: 2.0 ML?REMAINS AT 16 HOURS
     Route: 050
  5. LEVODOPA/CARBIDOPA [Concomitant]
     Active Substance: CARBIDOPA\LEVODOPA
     Indication: PARKINSON^S DISEASE
     Dosage: LEVODOPA/CARBIDOPA RET?100/25MG ONCE A DAY 3 TABLETS
  6. PRAMIPEXOLE. [Concomitant]
     Active Substance: PRAMIPEXOLE
     Indication: PARKINSON^S DISEASE
     Route: 048
  7. DUODOPA [Suspect]
     Active Substance: CARBIDOPA\LEVODOPA
     Dosage: CD INCREASED WITH 0.3 ML TO 2.9 ML
     Route: 050
  8. DUODOPA [Suspect]
     Active Substance: CARBIDOPA\LEVODOPA
     Dosage: MD: 13.0 ML, CD: 3.4 ML/H, ED: 2.0 ML
     Route: 050
     Dates: start: 20180702
  9. DUODOPA [Suspect]
     Active Substance: CARBIDOPA\LEVODOPA
     Indication: PARKINSON^S DISEASE
     Dosage: MD: 13.0 ML, CD: 3.6 ML/H, ED: 2.0 ML
     Route: 050
     Dates: start: 20180702, end: 2018
  10. DUODOPA [Suspect]
     Active Substance: CARBIDOPA\LEVODOPA
     Dosage: MD: 14 ML, CD: 4.4 ML/H, ED: 2.0 ML?REMAINS AT 16 HOURS
     Route: 050
  11. DUODOPA [Suspect]
     Active Substance: CARBIDOPA\LEVODOPA
     Dosage: MD: 14.0 ML, CD: 4.8 ML/H, ED: 2.0 ML
     Route: 050
  12. DUODOPA [Suspect]
     Active Substance: CARBIDOPA\LEVODOPA
     Dosage: MD 13, CD 2.6, ED 2
     Route: 050
  13. DUODOPA [Suspect]
     Active Substance: CARBIDOPA\LEVODOPA
     Dosage: MD: 14.0 ML CD: 4.4 ML/H ED: 2.0ML?REMAINS AT 16 HOURS
     Route: 050
  14. ENTACAPONE. [Concomitant]
     Active Substance: ENTACAPONE
     Indication: PRODUCT USED FOR UNKNOWN INDICATION
  15. DUODOPA [Suspect]
     Active Substance: CARBIDOPA\LEVODOPA
     Dosage: MD13.0, CD 3.6, ED 2.0
     Route: 050
  16. DUODOPA [Suspect]
     Active Substance: CARBIDOPA\LEVODOPA
     Dosage: MD IS RAISED WITH 1 ML. CD WITH 0.3 ML AN HOUR; MD 13.0 ML; CD 3.1 ML/UUR; ED 2.0 ML
     Route: 050
     Dates: start: 2018
  17. DUODOPA [Suspect]
     Active Substance: CARBIDOPA\LEVODOPA
     Dosage: MD: 13.0, CD: 3.9, ED: 2.0
     Route: 050
  18. DUODOPA [Suspect]
     Active Substance: CARBIDOPA\LEVODOPA
     Dosage: MD 10,5 ML; CD 3,3 ML/H; ED 2,0 ML?REMAINS AT 16 HOURS
     Route: 050
  19. DUODOPA [Suspect]
     Active Substance: CARBIDOPA\LEVODOPA
     Dosage: MD: 14.0 ML, CD: 4.7 ML/H, ED: 2.0 ML
     Route: 050
  20. LEVODOPA/CARBIDOPA [Concomitant]
     Active Substance: CARBIDOPA\LEVODOPA
     Indication: PRODUCT USED FOR UNKNOWN INDICATION
  21. LASIX [Concomitant]
     Active Substance: FUROSEMIDE
     Indication: DIURETIC THERAPY

REACTIONS (55)
  - Speech disorder [Not Recovered/Not Resolved]
  - Pain in extremity [Recovering/Resolving]
  - Muscle rigidity [Not Recovered/Not Resolved]
  - Paraesthesia [Not Recovered/Not Resolved]
  - Polyneuropathy [Not Recovered/Not Resolved]
  - Fall [Not Recovered/Not Resolved]
  - Stoma site inflammation [Recovered/Resolved]
  - Dysphonia [Not Recovered/Not Resolved]
  - Hallucination, visual [Not Recovered/Not Resolved]
  - Fall [Recovered/Resolved]
  - Fine motor skill dysfunction [Not Recovered/Not Resolved]
  - Product dose omission issue [Recovered/Resolved]
  - Contusion [Not Recovered/Not Resolved]
  - Fibroma [Recovered/Resolved]
  - Fall [Recovered/Resolved]
  - On and off phenomenon [Unknown]
  - Freezing phenomenon [Not Recovered/Not Resolved]
  - Unevaluable event [Recovering/Resolving]
  - Hip fracture [Recovered/Resolved]
  - Fall [Recovered/Resolved]
  - Wound [Not Recovered/Not Resolved]
  - Peripheral swelling [Recovering/Resolving]
  - Weight decreased [Recovered/Resolved]
  - Stoma site discharge [Recovered/Resolved]
  - Balance disorder [Not Recovered/Not Resolved]
  - Tension [Not Recovered/Not Resolved]
  - Upper limb fracture [Recovered/Resolved]
  - Faeces hard [Recovered/Resolved]
  - Limb discomfort [Unknown]
  - Pyrexia [Not Recovered/Not Resolved]
  - On and off phenomenon [Recovered/Resolved]
  - Stoma site erythema [Recovered/Resolved]
  - Salivary hypersecretion [Not Recovered/Not Resolved]
  - Fall [Recovered/Resolved]
  - Speech disorder [Unknown]
  - Stress [Not Recovered/Not Resolved]
  - Upper limb fracture [Not Recovered/Not Resolved]
  - Hypoaesthesia [Not Recovered/Not Resolved]
  - Malaise [Not Recovered/Not Resolved]
  - Therapeutic product effect incomplete [Recovered/Resolved]
  - Hypokinesia [Not Recovered/Not Resolved]
  - Dyskinesia [Recovered/Resolved]
  - Mobility decreased [Recovered/Resolved]
  - Cervical vertebral fracture [Recovering/Resolving]
  - Suspected COVID-19 [Recovered/Resolved]
  - Urinary tract infection [Unknown]
  - Memory impairment [Not Recovered/Not Resolved]
  - Stoma site erythema [Unknown]
  - Device issue [Unknown]
  - Dyskinesia [Unknown]
  - Loss of personal independence in daily activities [Not Recovered/Not Resolved]
  - Muscular weakness [Not Recovered/Not Resolved]
  - Nocturia [Not Recovered/Not Resolved]
  - Asthenia [Not Recovered/Not Resolved]
  - Gait disturbance [Recovering/Resolving]

NARRATIVE: CASE EVENT DATE: 2018
